FAERS Safety Report 10152322 (Version 1)
Quarter: 2014Q2

REPORT INFORMATION
  Report Type: Spontaneous
  Country: US (occurrence: None)
  Receive Date: 20140502
  Receipt Date: 20140502
  Transmission Date: 20141212
  Serious: Yes (Other)
  Sender: FDA-Public Use
  Company Number: None

PATIENT
  Age: 50 Year
  Sex: Male
  Weight: 95.26 kg

DRUGS (1)
  1. TRAMADOL [Suspect]
     Indication: ARTHRALGIA
     Dosage: 1EVERY 6 HOURS?THREE TIME DAILY?TAKEN BY MOUTH?
     Route: 048
     Dates: start: 20110612, end: 20130920

REACTIONS (1)
  - Gynaecomastia [None]
